FAERS Safety Report 13936668 (Version 1)
Quarter: 2017Q3

REPORT INFORMATION
  Report Type: Spontaneous
  Country: FR (occurrence: FR)
  Receive Date: 20170905
  Receipt Date: 20170905
  Transmission Date: 20171127
  Serious: Yes (Other)
  Sender: FDA-Public Use
  Company Number: FR-ELI_LILLY_AND_COMPANY-FR201708009070

PATIENT
  Age: 55 Year
  Sex: Male

DRUGS (10)
  1. ZYPADHERA [Suspect]
     Active Substance: OLANZAPINE PAMOATE
     Indication: BIPOLAR DISORDER
     Dosage: 405 MG, MONTHLY (1/M)
     Route: 030
     Dates: start: 20170729
  2. XEROQUEL [Suspect]
     Active Substance: QUETIAPINE FUMARATE
     Indication: BIPOLAR DISORDER
     Dosage: 1.2 G, DAILY
     Route: 048
     Dates: end: 20170801
  3. NOZINAN                            /00038601/ [Concomitant]
     Active Substance: LEVOMEPROMAZINE
     Indication: PRODUCT USED FOR UNKNOWN INDICATION
     Dosage: UNK, UNKNOWN
  4. LOXAPAC                            /00401801/ [Suspect]
     Active Substance: LOXAPINE SUCCINATE
     Indication: BIPOLAR DISORDER
     Dosage: 225 MG, DAILY
     Route: 048
     Dates: end: 20170802
  5. VALIUM [Concomitant]
     Active Substance: DIAZEPAM
     Dosage: 10 MG, UNK
     Route: 030
     Dates: start: 20170801, end: 20170801
  6. ZYPREXA [Suspect]
     Active Substance: OLANZAPINE
     Dosage: 10 MG, EACH EVENING
     Route: 058
     Dates: end: 20170801
  7. VALPROATE SODIUM. [Concomitant]
     Active Substance: VALPROATE SODIUM
     Indication: BIPOLAR DISORDER
     Dosage: 750 MG, TID
     Route: 048
     Dates: end: 20170802
  8. ZYPREXA [Suspect]
     Active Substance: OLANZAPINE
     Indication: BIPOLAR DISORDER
     Dosage: 10 MG, BID
     Route: 030
  9. VALIUM [Concomitant]
     Active Substance: DIAZEPAM
     Indication: AGITATION
     Dosage: 10 MG, TID
     Route: 048
     Dates: end: 20170802
  10. THERALITE [Concomitant]
     Active Substance: LITHIUM CARBONATE
     Indication: BIPOLAR DISORDER
     Dosage: 600 MG, EACH EVENING
     Route: 048
     Dates: end: 20170731

REACTIONS (14)
  - Monocyte count increased [Unknown]
  - Musculoskeletal stiffness [Recovered/Resolved]
  - Neuroleptic malignant syndrome [Recovered/Resolved]
  - Dysarthria [Unknown]
  - Tachycardia [Unknown]
  - Neutrophil count increased [Unknown]
  - Lymphocyte count decreased [Unknown]
  - Hyperleukocytosis [Unknown]
  - Blood creatine phosphokinase increased [Unknown]
  - C-reactive protein increased [Unknown]
  - Agitation [Unknown]
  - Hyperthermia [Recovered/Resolved]
  - Overdose [Unknown]
  - Blood creatinine increased [Unknown]

NARRATIVE: CASE EVENT DATE: 20170802
